FAERS Safety Report 26047250 (Version 3)
Quarter: 2025Q4

REPORT INFORMATION
  Report Type: Spontaneous
  Country: US (occurrence: US)
  Receive Date: 20251114
  Receipt Date: 20251229
  Transmission Date: 20260117
  Serious: Yes (Life-Threatening, Hospitalization, Other)
  Sender: GILEAD
  Company Number: US-GILEAD-2025-0736378

PATIENT
  Age: 43 Year
  Sex: Male
  Weight: 89 kg

DRUGS (99)
  1. TECARTUS [Suspect]
     Active Substance: BREXUCABTAGENE AUTOLEUCEL
     Indication: B-cell type acute leukaemia
     Dosage: 700 MG
     Route: 065
     Dates: start: 20251027
  2. TECARTUS [Suspect]
     Active Substance: BREXUCABTAGENE AUTOLEUCEL
     Indication: Philadelphia positive acute lymphocytic leukaemia
  3. TOCILIZUMAB [Concomitant]
     Active Substance: TOCILIZUMAB
     Dosage: 700 MG
     Route: 042
     Dates: start: 20251030
  4. CEFEPIME [Concomitant]
     Active Substance: CEFEPIME HYDROCHLORIDE
     Indication: Cytokine release syndrome
     Dosage: 2 MG
     Route: 042
     Dates: start: 20251030
  5. CEFEPIME [Concomitant]
     Active Substance: CEFEPIME HYDROCHLORIDE
     Dosage: 2 MG
     Route: 042
     Dates: start: 20251031
  6. CEFEPIME [Concomitant]
     Active Substance: CEFEPIME HYDROCHLORIDE
     Dosage: 6 MG
     Route: 042
     Dates: start: 20251101
  7. CEFEPIME [Concomitant]
     Active Substance: CEFEPIME HYDROCHLORIDE
     Dosage: 4 MG
     Route: 042
     Dates: start: 20251102
  8. CEFEPIME [Concomitant]
     Active Substance: CEFEPIME HYDROCHLORIDE
     Dosage: 6 MG
     Route: 042
     Dates: start: 20251103
  9. CEFEPIME [Concomitant]
     Active Substance: CEFEPIME HYDROCHLORIDE
     Dosage: 4 MG
     Route: 042
     Dates: start: 20251104
  10. DEXAMETHASONE [Concomitant]
     Active Substance: DEXAMETHASONE
     Dosage: 10 MG
     Route: 042
     Dates: start: 20251102
  11. DEXAMETHASONE [Concomitant]
     Active Substance: DEXAMETHASONE
     Dosage: 4 MG
     Route: 042
     Dates: start: 20251110
  12. DEXAMETHASONE [Concomitant]
     Active Substance: DEXAMETHASONE
     Dosage: 28 MG
     Route: 042
     Dates: start: 20251111
  13. DEXAMETHASONE [Concomitant]
     Active Substance: DEXAMETHASONE
     Dosage: 40 MG
     Route: 042
     Dates: start: 20251112
  14. METHYLPREDNISOLONE [Concomitant]
     Active Substance: METHYLPREDNISOLONE
     Dosage: 1000 MG, BID
     Route: 042
     Dates: start: 20251102, end: 20251109
  15. METHYLPREDNISOLONE [Concomitant]
     Active Substance: METHYLPREDNISOLONE
     Dosage: 500 MG, BID
     Route: 042
     Dates: start: 20251110
  16. HYDROCORTISONE [Concomitant]
     Active Substance: HYDROCORTISONE
     Dosage: 50 MG
     Route: 042
     Dates: start: 20251103
  17. HALOPERIDOL [Concomitant]
     Active Substance: HALOPERIDOL
     Dosage: 1 MG
     Route: 065
     Dates: start: 20251104
  18. HALOPERIDOL [Concomitant]
     Active Substance: HALOPERIDOL
     Dosage: 2.5 MG
     Route: 065
     Dates: start: 20250911
  19. METHOTREXATE [Concomitant]
     Active Substance: METHOTREXATE
     Dosage: 6 MG
     Route: 065
     Dates: start: 20251103
  20. ONDANSETRON [Concomitant]
     Active Substance: ONDANSETRON
     Dosage: 8 MG
     Route: 065
     Dates: start: 20251111
  21. ONDANSETRON [Concomitant]
     Active Substance: ONDANSETRON
     Dosage: 4 MG
     Route: 065
     Dates: start: 20251103
  22. ONDANSETRON [Concomitant]
     Active Substance: ONDANSETRON
     Dosage: 8 MG
     Route: 065
     Dates: start: 20251101
  23. ONDANSETRON [Concomitant]
     Active Substance: ONDANSETRON
     Dosage: 8 MG, QD
     Route: 065
     Dates: start: 20251028, end: 20251031
  24. PROCHLORPERAZINE [Concomitant]
     Active Substance: PROCHLORPERAZINE
     Dosage: 10 MG
     Route: 065
     Dates: start: 20251007
  25. PROCHLORPERAZINE [Concomitant]
     Active Substance: PROCHLORPERAZINE
     Dosage: 10 MG, BID
     Route: 065
     Dates: start: 20251101
  26. PROCHLORPERAZINE [Concomitant]
     Active Substance: PROCHLORPERAZINE
     Dosage: 10 MG, BID
     Route: 065
     Dates: start: 20251030
  27. PROCHLORPERAZINE [Concomitant]
     Active Substance: PROCHLORPERAZINE
     Dosage: 10 MG, BID
     Route: 065
     Dates: start: 20251031
  28. FILGRASTIM [Concomitant]
     Active Substance: FILGRASTIM
     Dosage: 480 MCG
     Route: 065
     Dates: start: 20251031
  29. FILGRASTIM [Concomitant]
     Active Substance: FILGRASTIM
     Dosage: 480 MCG
     Route: 065
     Dates: start: 20251101
  30. ATOVAQUONE [Concomitant]
     Active Substance: ATOVAQUONE
     Dosage: 1500 MG, QD
     Route: 065
     Dates: start: 20251027, end: 20251031
  31. ATOVAQUONE [Concomitant]
     Active Substance: ATOVAQUONE
     Dosage: 1500 MG
     Route: 065
     Dates: start: 20251101
  32. ATOVAQUONE [Concomitant]
     Active Substance: ATOVAQUONE
     Dosage: 1500 MG, QD
     Route: 065
     Dates: start: 20251105, end: 20251112
  33. FLUCONAZOLE [Concomitant]
     Active Substance: FLUCONAZOLE
     Dosage: 200 MG, QD
     Route: 065
     Dates: start: 20251027, end: 20251106
  34. LEVOFLOXACIN [Concomitant]
     Active Substance: LEVOFLOXACIN
     Dosage: 500 MG, QD
     Route: 065
     Dates: start: 20251027, end: 20251029
  35. MEROPENEM [Concomitant]
     Active Substance: MEROPENEM
     Dosage: 1000 MG
     Route: 065
     Dates: start: 20251104
  36. MEROPENEM [Concomitant]
     Active Substance: MEROPENEM
     Dosage: 2500 MG
     Route: 065
     Dates: start: 20251105
  37. MEROPENEM [Concomitant]
     Active Substance: MEROPENEM
     Dosage: 2000 MG
     Route: 065
     Dates: start: 20251106
  38. MEROPENEM [Concomitant]
     Active Substance: MEROPENEM
     Dosage: 1500 MG
     Route: 065
     Dates: start: 20251107
  39. MEROPENEM [Concomitant]
     Active Substance: MEROPENEM
     Dosage: 2500 MG
     Route: 065
     Dates: start: 20251108
  40. MEROPENEM [Concomitant]
     Active Substance: MEROPENEM
     Dosage: 1500 MG
     Route: 065
     Dates: start: 20251109
  41. MEROPENEM [Concomitant]
     Active Substance: MEROPENEM
     Dosage: 2000 MG
     Route: 065
     Dates: start: 20251110
  42. MEROPENEM [Concomitant]
     Active Substance: MEROPENEM
     Dosage: 1000 MG
     Route: 065
     Dates: start: 20251111
  43. MICAFUNGIN [Concomitant]
     Active Substance: MICAFUNGIN SODIUM
     Dosage: 100 MG, QD
     Route: 065
     Dates: start: 20251107, end: 20251112
  44. VALACYCLOVIR [Concomitant]
     Active Substance: VALACYCLOVIR HYDROCHLORIDE
     Dosage: 1000 MG
     Route: 065
     Dates: start: 20251027, end: 20251029
  45. VALACYCLOVIR [Concomitant]
     Active Substance: VALACYCLOVIR HYDROCHLORIDE
     Dosage: 500 MG
     Route: 065
     Dates: start: 20251030
  46. VALACYCLOVIR [Concomitant]
     Active Substance: VALACYCLOVIR HYDROCHLORIDE
     Dosage: 1000 MG
     Route: 065
     Dates: start: 20251031
  47. VALACYCLOVIR [Concomitant]
     Active Substance: VALACYCLOVIR HYDROCHLORIDE
     Dosage: 500 MG
     Route: 065
     Dates: start: 20251101
  48. VALACYCLOVIR [Concomitant]
     Active Substance: VALACYCLOVIR HYDROCHLORIDE
     Dosage: 500 MG
     Route: 065
     Dates: start: 20251103, end: 20251104
  49. VALACYCLOVIR [Concomitant]
     Active Substance: VALACYCLOVIR HYDROCHLORIDE
     Dosage: 1000 MG
     Route: 065
     Dates: start: 20251105, end: 20251108
  50. FENTANYL [Concomitant]
     Active Substance: FENTANYL
     Dosage: 250 MCG
     Route: 065
     Dates: start: 20251103
  51. FENTANYL [Concomitant]
     Active Substance: FENTANYL
     Dosage: 1900 MCG, BEGIN BAG 20 ML TWICE
     Route: 065
     Dates: start: 20251104
  52. FENTANYL [Concomitant]
     Active Substance: FENTANYL
     Dosage: 4218.75 MCG, BEGIN BAG 20 ML TWICE, BEGIN BAG 5,000 MCG
     Route: 065
     Dates: start: 20251105
  53. FENTANYL [Concomitant]
     Active Substance: FENTANYL
     Dosage: 6420.835 MCG, BEGIN BAG 10000 MCG
     Route: 065
     Dates: start: 20251106
  54. FENTANYL [Concomitant]
     Active Substance: FENTANYL
     Dosage: 8482.5 MCG, BEGIN BAG 5000 MCG
     Route: 065
     Dates: start: 20251107
  55. FENTANYL [Concomitant]
     Active Substance: FENTANYL
     Dosage: 4112.085 MCG, BEGIN BAG 20 ML TWICE
     Route: 065
     Dates: start: 20251108
  56. FENTANYL [Concomitant]
     Active Substance: FENTANYL
     Dosage: 804.5 MCG, BEGIN BAG 20 ML TWICE
     Route: 065
     Dates: start: 20251109
  57. HYDROMORPHONE [Concomitant]
     Active Substance: HYDROMORPHONE
     Dosage: 6 MG, BEGIN BAG 10 ML TWICE
     Route: 065
     Dates: start: 20251027
  58. HYDROMORPHONE [Concomitant]
     Active Substance: HYDROMORPHONE
     Dosage: 0.2 MG, BEGIN BAG 10 ML 3 TIMES
     Route: 065
     Dates: start: 20251028
  59. HYDROMORPHONE [Concomitant]
     Active Substance: HYDROMORPHONE
     Dosage: BEGIN BAG 10 ML TWICE
     Route: 065
     Dates: start: 20251029
  60. HYDROMORPHONE [Concomitant]
     Active Substance: HYDROMORPHONE
     Dosage: BEGIN BAG 10 ML
     Route: 065
     Dates: start: 20251030
  61. HYDROMORPHONE [Concomitant]
     Active Substance: HYDROMORPHONE
     Dosage: BEGIN BAG 10 ML 3 TIMES
     Route: 065
     Dates: start: 20251031
  62. HYDROMORPHONE [Concomitant]
     Active Substance: HYDROMORPHONE
     Dosage: BEGIN BAG 10 ML TWICE
     Route: 065
     Dates: start: 20251101
  63. HYDROMORPHONE [Concomitant]
     Active Substance: HYDROMORPHONE
     Dosage: 1 MG, BEGIN BAG 10 ML
     Route: 065
     Dates: start: 20251102
  64. HYDROMORPHONE [Concomitant]
     Active Substance: HYDROMORPHONE
     Dosage: 3 MG
     Route: 065
     Dates: start: 20251103
  65. HYDROMORPHONE [Concomitant]
     Active Substance: HYDROMORPHONE
     Dosage: 4 MG, BEGIN BAG 10 ML, BEGIN BAG 50 ML
     Route: 065
     Dates: start: 20251104
  66. GABAPENTIN [Concomitant]
     Active Substance: GABAPENTIN
     Dosage: 600 MG
     Route: 065
     Dates: start: 20251106
  67. GABAPENTIN [Concomitant]
     Active Substance: GABAPENTIN
     Dosage: 900 MG
     Route: 065
     Dates: start: 20251107
  68. GABAPENTIN [Concomitant]
     Active Substance: GABAPENTIN
     Dosage: 1200 MG
     Route: 065
     Dates: start: 20251108
  69. GABAPENTIN [Concomitant]
     Active Substance: GABAPENTIN
     Dosage: 1800 MG
     Route: 065
     Dates: start: 20251109, end: 20251111
  70. GABAPENTIN [Concomitant]
     Active Substance: GABAPENTIN
     Dosage: 1800 MG
     Route: 065
     Dates: start: 20251109, end: 20251111
  71. GABAPENTIN [Concomitant]
     Active Substance: GABAPENTIN
     Dosage: 1200 MG
     Route: 065
     Dates: start: 20251112
  72. OXYCODONE [Concomitant]
     Active Substance: OXYCODONE
     Dosage: 20 MG
     Route: 065
     Dates: start: 20251109
  73. DIPHENHYDRAMINE [Concomitant]
     Active Substance: DIPHENHYDRAMINE
     Dosage: 25 MG
     Route: 065
     Dates: start: 20251027
  74. DIPHENHYDRAMINE [Concomitant]
     Active Substance: DIPHENHYDRAMINE
     Dosage: 25 MG
     Route: 065
     Dates: start: 20251102
  75. LORATADINE [Concomitant]
     Active Substance: LORATADINE
     Dosage: 10 MG
     Route: 065
     Dates: start: 20251029, end: 20251031
  76. LORATADINE [Concomitant]
     Active Substance: LORATADINE
     Dosage: 20 MG
     Route: 065
     Dates: start: 20251101
  77. MAGNESIUM OXIDE [Concomitant]
     Active Substance: MAGNESIUM OXIDE
     Dosage: 800 MG
     Route: 065
     Dates: start: 20251028, end: 20251029
  78. MAGNESIUM OXIDE [Concomitant]
     Active Substance: MAGNESIUM OXIDE
     Dosage: 800 MG
     Route: 065
     Dates: start: 20251108
  79. MAGNESIUM SULFATE [Concomitant]
     Active Substance: MAGNESIUM SULFATE
     Dosage: 2 G
     Route: 065
     Dates: start: 20251027
  80. MAGNESIUM SULFATE [Concomitant]
     Active Substance: MAGNESIUM SULFATE
     Dosage: 2 G
     Route: 065
     Dates: start: 20251029
  81. MAGNESIUM SULFATE [Concomitant]
     Active Substance: MAGNESIUM SULFATE
     Dosage: 2 G
     Route: 065
     Dates: start: 20251031
  82. MAGNESIUM SULFATE [Concomitant]
     Active Substance: MAGNESIUM SULFATE
     Dosage: 2 G
     Route: 065
     Dates: start: 20251101
  83. MAGNESIUM SULFATE [Concomitant]
     Active Substance: MAGNESIUM SULFATE
     Dosage: 2 G
     Route: 065
     Dates: start: 20251103
  84. MAGNESIUM SULFATE [Concomitant]
     Active Substance: MAGNESIUM SULFATE
     Dosage: 2 G
     Route: 065
     Dates: start: 20251107
  85. MAGNESIUM SULFATE [Concomitant]
     Active Substance: MAGNESIUM SULFATE
     Dosage: 2 G
     Route: 065
     Dates: start: 20251109
  86. POTASSIUM CHLORIDE [Concomitant]
     Active Substance: POTASSIUM CHLORIDE
     Dosage: 40 MEQ
     Route: 065
     Dates: start: 20251027
  87. POTASSIUM CHLORIDE [Concomitant]
     Active Substance: POTASSIUM CHLORIDE
     Dosage: 20 MEQ
     Route: 065
     Dates: start: 20251028
  88. POTASSIUM CHLORIDE [Concomitant]
     Active Substance: POTASSIUM CHLORIDE
     Dosage: 40 MEQ
     Route: 065
     Dates: start: 20251029
  89. POTASSIUM CHLORIDE [Concomitant]
     Active Substance: POTASSIUM CHLORIDE
     Dosage: 20 MEQ
     Route: 065
     Dates: start: 20251031
  90. POTASSIUM CHLORIDE [Concomitant]
     Active Substance: POTASSIUM CHLORIDE
     Dosage: 40 MEQ
     Route: 065
     Dates: start: 20251101
  91. POTASSIUM CHLORIDE [Concomitant]
     Active Substance: POTASSIUM CHLORIDE
     Dosage: 80 MEQ
     Route: 065
     Dates: start: 20251105
  92. POTASSIUM CHLORIDE [Concomitant]
     Active Substance: POTASSIUM CHLORIDE
     Dosage: 100 MEQ
     Route: 065
     Dates: start: 20251106
  93. POTASSIUM CHLORIDE [Concomitant]
     Active Substance: POTASSIUM CHLORIDE
     Dosage: 100 MEQ
     Route: 065
     Dates: start: 20251107
  94. POTASSIUM CHLORIDE [Concomitant]
     Active Substance: POTASSIUM CHLORIDE
     Dosage: 200 MEQ
     Route: 065
     Dates: start: 20251108
  95. POTASSIUM CHLORIDE [Concomitant]
     Active Substance: POTASSIUM CHLORIDE
     Dosage: 140 MEQ
     Route: 065
     Dates: start: 20251109
  96. POTASSIUM CHLORIDE [Concomitant]
     Active Substance: POTASSIUM CHLORIDE
     Dosage: 40 MEQ
     Route: 065
     Dates: start: 20251110
  97. POTASSIUM CHLORIDE [Concomitant]
     Active Substance: POTASSIUM CHLORIDE
     Dosage: 80 MEQ
     Route: 065
     Dates: start: 20251111
  98. POTASSIUM CHLORIDE [Concomitant]
     Active Substance: POTASSIUM CHLORIDE
     Dosage: 40 MEQ
     Route: 065
     Dates: start: 20251112
  99. PANTOPRAZOLE [Concomitant]
     Active Substance: PANTOPRAZOLE
     Dosage: 40 MG, QD
     Route: 065
     Dates: start: 20251027, end: 20251111

REACTIONS (5)
  - Immune effector cell-associated neurotoxicity syndrome [Recovered/Resolved]
  - Pyrexia [Unknown]
  - Tachycardia [Unknown]
  - Tachypnoea [Unknown]
  - Chills [Unknown]

NARRATIVE: CASE EVENT DATE: 20251030
